FAERS Safety Report 8781441 (Version 1)
Quarter: 2012Q4

REPORT INFORMATION
  Report Type: Report from Study
  Country: US (occurrence: US)
  Receive Date: 20120913
  Receipt Date: 20120913
  Transmission Date: 20130627
  Serious: No
  Sender: FDA-Public Use
  Company Number: US-VERTEX PHARMACEUTICAL INC.-AE-2012-007958

PATIENT
  Sex: Female
  Weight: 83.2 kg

DRUGS (6)
  1. INCIVEK [Suspect]
     Indication: HEPATITIS C
     Route: 048
     Dates: start: 20120412
  2. PEGASYS [Concomitant]
     Indication: HEPATITIS C
     Dates: start: 20120412
  3. RIBAVIRIN [Concomitant]
     Indication: HEPATITIS C
     Dates: start: 20120412
  4. SYNTHROID [Concomitant]
  5. METHADONE [Concomitant]
  6. CENTRUM SILVER [Concomitant]

REACTIONS (2)
  - Stomatitis [Not Recovered/Not Resolved]
  - Fatigue [Not Recovered/Not Resolved]
